FAERS Safety Report 5353540-5 (Version None)
Quarter: 2007Q2

REPORT INFORMATION
  Report Type: 
  Country: None (occurrence: None)
  Receive Date: 20070608
  Receipt Date: 20070608
  Transmission Date: 20071010
  Serious: Yes (Other)
  Sender: FDA-Public Use
  Company Number: None

PATIENT
  Age: 55 Year
  Sex: Female

DRUGS (1)
  1. TRANDOLAPRIL [Suspect]
     Dosage: 2MG ONCE DAILY ORAL
     Route: 048
     Dates: start: 20070426, end: 20070607

REACTIONS (2)
  - OEDEMA [None]
  - PHARMACEUTICAL PRODUCT COMPLAINT [None]
